FAERS Safety Report 7627549-2 (Version None)
Quarter: 2011Q3

REPORT INFORMATION
  Report Type: 
  Country: None (occurrence: None)
  Receive Date: 20110721
  Receipt Date: 20110712
  Transmission Date: 20111222
  Serious: Yes (Death)
  Sender: FDA-Public Use
  Company Number: US-TYCO HEALTHCARE/MALLINCKRODT-T201101381

PATIENT
  Age: 23 Year
  Sex: Female

DRUGS (2)
  1. OPTIRAY 300 [Suspect]
     Indication: COMPUTERISED TOMOGRAM
     Dosage: 100 ML, SINGLE
     Route: 042
  2. INTRAVENOUS FLUIDS [Concomitant]

REACTIONS (2)
  - ANAPHYLACTOID REACTION [None]
  - CARDIO-RESPIRATORY ARREST [None]
